FAERS Safety Report 14710260 (Version 1)
Quarter: 2018Q2

REPORT INFORMATION
  Report Type: Spontaneous
  Country: US (occurrence: US)
  Receive Date: 20180403
  Receipt Date: 20180403
  Transmission Date: 20180711
  Serious: No
  Sender: FDA-Public Use
  Company Number: US-ROCHE-1902163

PATIENT
  Age: 73 Year
  Sex: Male

DRUGS (7)
  1. ERIVEDGE [Suspect]
     Active Substance: VISMODEGIB
     Dosage: TAKE ONE CAPSULE BY MOUTH EVERY DAY
     Route: 048
     Dates: start: 20170302
  2. ATORVASTATIN [Concomitant]
     Active Substance: ATORVASTATIN
     Route: 065
  3. FUROSEMIDE. [Concomitant]
     Active Substance: FUROSEMIDE
     Route: 065
  4. ERIVEDGE [Suspect]
     Active Substance: VISMODEGIB
     Indication: BASAL CELL CARCINOMA
     Dosage: TAKE ONE CAPSULE BY MOUTH EVERY DAY
     Route: 048
     Dates: start: 201701
  5. ERIVEDGE [Suspect]
     Active Substance: VISMODEGIB
     Dosage: TAKE ONE CAPSULE BY MOUTH EVERY DAY
     Route: 048
     Dates: start: 20170228
  6. LOSARTAN POTASSIUM. [Concomitant]
     Active Substance: LOSARTAN POTASSIUM
     Route: 065
  7. CEPHALEXIN. [Concomitant]
     Active Substance: CEPHALEXIN
     Route: 065

REACTIONS (11)
  - Dysgeusia [Not Recovered/Not Resolved]
  - Muscle spasms [Not Recovered/Not Resolved]
  - Pain [Not Recovered/Not Resolved]
  - Dysgeusia [Not Recovered/Not Resolved]
  - Weight increased [Not Recovered/Not Resolved]
  - Hair colour changes [Not Recovered/Not Resolved]
  - Sinusitis [Not Recovered/Not Resolved]
  - Myalgia [Not Recovered/Not Resolved]
  - Hair growth abnormal [Not Recovered/Not Resolved]
  - Decreased appetite [Not Recovered/Not Resolved]
  - Decreased appetite [Not Recovered/Not Resolved]

NARRATIVE: CASE EVENT DATE: 20170315
